FAERS Safety Report 8011116-5 (Version None)
Quarter: 2011Q4

REPORT INFORMATION
  Report Type: 
  Country: None (occurrence: None)
  Receive Date: 20111222
  Receipt Date: 20111219
  Transmission Date: 20120403
  Serious: Yes (Other)
  Sender: FDA-Public Use
  Company Number: AUR-APL-2011-05928

PATIENT
  Age: 7 Year

DRUGS (1)
  1. AMOXICILLIN [Suspect]
     Indication: TOOTH ABSCESS
     Dosage: 750 MG (250 MG,3 IN 1 D),ORAL
     Route: 048
     Dates: start: 20111110

REACTIONS (2)
  - SWELLING FACE [None]
  - HYPERSENSITIVITY [None]
